FAERS Safety Report 7353962-7 (Version None)
Quarter: 2011Q1

REPORT INFORMATION
  Report Type: 
  Country: None (occurrence: None)
  Receive Date: 20110315
  Receipt Date: 20110301
  Transmission Date: 20110831
  Serious: Yes (Life-Threatening, Hospitalization)
  Sender: FDA-Public Use
  Company Number: PHHY2011HU17854

PATIENT
  Age: 18 Year
  Sex: Male

DRUGS (3)
  1. TIAPRIDE [Suspect]
     Indication: TOURETTE'S DISORDER
  2. HALOPERIDOL [Suspect]
     Indication: TOURETTE'S DISORDER
  3. CLONAZEPAM [Suspect]
     Indication: TOURETTE'S DISORDER
     Dosage: UNK

REACTIONS (11)
  - OBSESSIVE-COMPULSIVE DISORDER [None]
  - PSYCHOMOTOR HYPERACTIVITY [None]
  - HYPERHIDROSIS [None]
  - INJURY [None]
  - SINUS TACHYCARDIA [None]
  - PYREXIA [None]
  - FATIGUE [None]
  - INSOMNIA [None]
  - PAIN [None]
  - TIC [None]
  - HYPERKINESIA [None]
